FAERS Safety Report 8884938 (Version 4)
Quarter: 2014Q2

REPORT INFORMATION
  Report Type: Spontaneous
  Country: US (occurrence: US)
  Receive Date: 20121102
  Receipt Date: 20140529
  Transmission Date: 20141212
  Serious: No
  Sender: FDA-Public Use
  Company Number: US-PFIZER INC-2012273848

PATIENT
  Age: 78 Year
  Sex: Male

DRUGS (20)
  1. LYRICA [Suspect]
     Dosage: 200 MG, 2X/DAY
     Route: 048
  2. LYRICA [Suspect]
     Dosage: 150 MG, 2X/DAY
     Route: 048
  3. LYRICA [Suspect]
     Dosage: 150 MG, 3X/DAY
  4. DETROL LA [Suspect]
     Dosage: 4 MG, DAILY, EVERY NIGHT
     Route: 048
  5. NORCO [Concomitant]
     Indication: PAIN
     Dosage: 1 DF, 4X/DAY, AS NEEDED
     Route: 048
  6. CELEXA [Concomitant]
     Dosage: 20 MG, DAILY
     Route: 048
  7. COMBIVENT RESPIMAT [Concomitant]
     Dosage: 20-100 MCG/ACT AERS; 4X/DAY
  8. FLOVENT HFA [Concomitant]
     Dosage: 220 MCG/ACT; 2 PUFFS TWICE DAILY
  9. COUMADINE [Concomitant]
     Indication: ANTICOAGULANT THERAPY
     Dosage: 5 MG, DAILY
     Route: 048
  10. COUMADINE [Concomitant]
     Dosage: 2 MG, DAILY
     Route: 048
  11. LASIX [Concomitant]
     Indication: DIURETIC THERAPY
     Dosage: 40 MG, DAILY
     Route: 048
  12. PROVENTIL /OLD FORM/ [Concomitant]
     Dosage: (2.5 MG/3ML) 3 ML, 4X/DAY
  13. PRILOSEC [Concomitant]
     Indication: GASTROOESOPHAGEAL REFLUX DISEASE
     Dosage: 20 MG, 1X/DAY
     Route: 048
  14. IPRATROPIUM BROMIDE/SALBUTAMOL [Concomitant]
     Indication: CHRONIC OBSTRUCTIVE PULMONARY DISEASE
     Dosage: 0.5-2.5 (3) MG/3ML; 4X/DAY
  15. KLOR CON M20 [Concomitant]
     Dosage: 20 MEQ, DAILY
     Route: 048
  16. SPIRIVA [Concomitant]
  17. AMBIEN [Concomitant]
  18. DETROL [Concomitant]
     Dosage: UNK
  19. ADVAIR [Concomitant]
  20. ZAROXOLYN [Concomitant]
     Dosage: UNK

REACTIONS (1)
  - Nasopharyngitis [Unknown]
